FAERS Safety Report 9339062 (Version 1)
Quarter: 2013Q2

REPORT INFORMATION
  Report Type: Report from Study
  Country: IT (occurrence: IT)
  Receive Date: 20130610
  Receipt Date: 20130610
  Transmission Date: 20140414
  Serious: Yes (Death)
  Sender: FDA-Public Use
  Company Number: IT-GENZYME-CLOF-1002495

PATIENT
  Sex: 0

DRUGS (5)
  1. EVOLTRA [Suspect]
     Indication: ACUTE LEUKAEMIA
     Dosage: 40 MG/M2, QD
     Route: 042
  2. ETOPOSIDE [Suspect]
     Indication: ACUTE LEUKAEMIA
     Dosage: 100 MG/M2, QD (OVER 2 HOURS)
     Route: 042
  3. CYCLOPHOSPHAMIDE [Suspect]
     Indication: ACUTE LEUKAEMIA
     Dosage: 440 MG/M2, QD (OVER 1 HOUR)
     Route: 042
  4. ANTIBIOTICS [Concomitant]
     Indication: PROPHYLAXIS
     Dosage: UNK
     Route: 065
  5. ANTIFUNGALS [Concomitant]
     Indication: PROPHYLAXIS
     Dosage: UNK
     Route: 065

REACTIONS (2)
  - Cardiac failure [Fatal]
  - Ventricular hypertrophy [Fatal]
